FAERS Safety Report 13677699 (Version 1)
Quarter: 2017Q2

REPORT INFORMATION
  Report Type: Spontaneous
  Country: IT (occurrence: IT)
  Receive Date: 20170622
  Receipt Date: 20170622
  Transmission Date: 20170830
  Serious: Yes (Hospitalization, Other)
  Sender: FDA-Public Use
  Company Number: IT-GLAXOSMITHKLINE-IT2017GSK095923

PATIENT
  Age: 66 Year
  Sex: Male

DRUGS (3)
  1. DICLOFENAC [Suspect]
     Active Substance: DICLOFENAC
     Dosage: UNK
     Route: 030
  2. BETAMETHASONE. [Interacting]
     Active Substance: BETAMETHASONE
     Dosage: UNK
     Route: 030
  3. THIOCOLCHICOSIDE [Concomitant]
     Active Substance: THIOCOLCHICOSIDE

REACTIONS (2)
  - Drug interaction [Unknown]
  - Abdominal pain [Recovering/Resolving]
